FAERS Safety Report 6905808-6 (Version None)
Quarter: 2010Q3

REPORT INFORMATION
  Report Type: 
  Country: None (occurrence: None)
  Receive Date: 20100804
  Receipt Date: 20100726
  Transmission Date: 20110219
  Serious: Yes (Hospitalization)
  Sender: FDA-Public Use
  Company Number: FR-ROCHE-685801

PATIENT
  Sex: Female
  Weight: 53 kg

DRUGS (3)
  1. BEVACIZUMAB [Suspect]
     Route: 042
     Dates: start: 20090910, end: 20100129
  2. TORISEL [Suspect]
     Route: 042
     Dates: start: 20090910, end: 20100129
  3. NOVATREX [Concomitant]
     Indication: RHEUMATOID ARTHRITIS
     Dates: start: 20060101

REACTIONS (2)
  - CARDIAC FAILURE [None]
  - LUNG DISORDER [None]
